FAERS Safety Report 7124260-1 (Version None)
Quarter: 2010Q4

REPORT INFORMATION
  Report Type: 
  Country: None (occurrence: None)
  Receive Date: 20101126
  Receipt Date: 20101115
  Transmission Date: 20110411
  Serious: Yes (Other)
  Sender: FDA-Public Use
  Company Number: PHHY2010ZA16586

PATIENT
  Sex: Male

DRUGS (7)
  1. TAREG [Suspect]
     Indication: HYPERTENSION
     Dosage: 160 MG, UNK
  2. ZIAK [Concomitant]
     Indication: HYPERTENSION
     Dosage: 5 MG, UNK
  3. AMLOC [Concomitant]
     Indication: HYPERTENSION
     Dosage: 5 MG, UNK
  4. SIMVASTATIN [Concomitant]
     Indication: BLOOD CHOLESTEROL INCREASED
     Dosage: 20 MG, UNK
  5. METFORMIN [Concomitant]
     Indication: DIABETES MELLITUS
  6. GLUCOVANCE [Concomitant]
     Indication: DIABETES MELLITUS
  7. ASPIRIN [Concomitant]

REACTIONS (3)
  - BLOOD CHOLESTEROL INCREASED [None]
  - DIABETES MELLITUS [None]
  - PROSTATE CANCER [None]
